FAERS Safety Report 4607970-7 (Version None)
Quarter: 2005Q2

REPORT INFORMATION
  Report Type: 
  Country: None (occurrence: None)
  Receive Date: 20050303
  Receipt Date: 20041202
  Transmission Date: 20051028
  Serious: No
  Sender: FDA-Public Use
  Company Number: 210865

PATIENT
  Age: 55 Year
  Sex: Female

DRUGS (1)
  1. XOLAIR [Suspect]
     Dosage: 150MG, Q4WK,
     Dates: start: 20041202, end: 20041202

REACTIONS (2)
  - INJECTION SITE REACTION [None]
  - PRURITUS [None]
